FAERS Safety Report 15767042 (Version 3)
Quarter: 2019Q1

REPORT INFORMATION
  Report Type: Spontaneous
  Country: US (occurrence: US)
  Receive Date: 20181227
  Receipt Date: 20190108
  Transmission Date: 20190417
  Serious: No
  Sender: FDA-Public Use
  Company Number: US-LEO PHARMA-315896

PATIENT
  Age: 74 Year
  Sex: Female

DRUGS (1)
  1. PICATO [Suspect]
     Active Substance: INGENOL MEBUTATE
     Indication: ACTINIC KERATOSIS
     Dosage: PATIENT STARTED TREATMENT APPROXIMATELY 2 MONTHS AGO AT THE TIME OF REPORT?0.015% TO FACE (UPPER LIP
     Route: 061

REACTIONS (5)
  - Lip swelling [Recovered/Resolved]
  - Application site pain [Recovered/Resolved]
  - Application site discolouration [Not Recovered/Not Resolved]
  - Scar [Recovered/Resolved]
  - Insomnia [Unknown]

NARRATIVE: CASE EVENT DATE: 20181018
